FAERS Safety Report 21412885 (Version 1)
Quarter: 2022Q4

REPORT INFORMATION
  Report Type: Report from Study
  Country: US (occurrence: US)
  Receive Date: 20221005
  Receipt Date: 20221005
  Transmission Date: 20230113
  Serious: No
  Sender: FDA-Public Use
  Company Number: US-IGSA-BIG0020603

PATIENT
  Sex: Male
  Weight: 95.238 kg

DRUGS (1)
  1. GAMUNEX-C [Suspect]
     Active Substance: HUMAN IMMUNOGLOBULIN G
     Indication: Chronic inflammatory demyelinating polyradiculoneuropathy
     Dosage: 40 GRAM, Q.WK.
     Route: 042
     Dates: start: 201812, end: 201902

REACTIONS (2)
  - Eczema [Recovered/Resolved]
  - Hepatic enzyme increased [Recovered/Resolved]
